FAERS Safety Report 6108024-3 (Version None)
Quarter: 2009Q1

REPORT INFORMATION
  Report Type: 
  Country: None (occurrence: None)
  Receive Date: 20090309
  Receipt Date: 20090305
  Transmission Date: 20090719
  Serious: Yes (Death)
  Sender: FDA-Public Use
  Company Number: US-JNJFOC-20090301754

PATIENT
  Age: 95 Year
  Sex: Female

DRUGS (2)
  1. DURAGESIC-100 [Suspect]
     Route: 062
  2. DURAGESIC-100 [Suspect]
     Indication: OSTEOARTHRITIS
     Route: 062

REACTIONS (7)
  - ADVERSE EVENT [None]
  - DEATH [None]
  - DRUG DISPENSING ERROR [None]
  - HYPOVENTILATION [None]
  - PRODUCT QUALITY ISSUE [None]
  - RESPIRATORY ARREST [None]
  - SOMNOLENCE [None]
